FAERS Safety Report 4966860-0 (Version None)
Quarter: 2006Q2

REPORT INFORMATION
  Report Type: 
  Country: None (occurrence: None)
  Receive Date: 20060407
  Receipt Date: 20060309
  Transmission Date: 20061013
  Serious: Yes (Hospitalization, Disabling)
  Sender: FDA-Public Use
  Company Number: US-MERCK-0603USA01710

PATIENT
  Age: 39 Year
  Sex: Male
  Weight: 114 kg

DRUGS (7)
  1. VIOXX [Suspect]
     Indication: BACK PAIN
     Route: 048
     Dates: start: 20000504, end: 20000512
  2. VIOXX [Suspect]
     Indication: GROIN PAIN
     Route: 048
     Dates: start: 20000504, end: 20000512
  3. AUGMENTIN '125' [Concomitant]
     Indication: INFECTION
     Route: 065
  4. WELLBUTRIN [Concomitant]
     Indication: DEPRESSION
     Route: 065
  5. COUMADIN [Concomitant]
     Indication: THROMBOSIS
     Route: 065
  6. HEPATHROMBIN (HEPARIN) [Concomitant]
     Indication: PULMONARY EMBOLISM
     Route: 065
  7. VENTILAN (ALBUTEROL) [Concomitant]
     Route: 065

REACTIONS (3)
  - DEEP VEIN THROMBOSIS [None]
  - DEPRESSION [None]
  - PULMONARY EMBOLISM [None]
